FAERS Safety Report 15945344 (Version 1)
Quarter: 2019Q1

REPORT INFORMATION
  Report Type: Spontaneous
  Country: US (occurrence: US)
  Receive Date: 20190211
  Receipt Date: 20190211
  Transmission Date: 20190417
  Serious: No
  Sender: FDA-Public Use
  Company Number: US-SA-2019SA031319

PATIENT
  Age: 58 Year
  Sex: Male

DRUGS (2)
  1. SOLIQUA 100/33 [Suspect]
     Active Substance: INSULIN GLARGINE\LIXISENATIDE
     Dosage: UNK
  2. SOLOSTAR [Suspect]
     Active Substance: DEVICE
     Dosage: 20 UNITS IN THE MORNING AND 15 UNITS IN THE EVENING
     Route: 065

REACTIONS (1)
  - Gait disturbance [Unknown]
